FAERS Safety Report 8391375-X (Version None)
Quarter: 2012Q2

REPORT INFORMATION
  Report Type: 
  Country: None (occurrence: None)
  Receive Date: 20120515
  Receipt Date: 20120507
  Transmission Date: 20120825
  Serious: Yes (Hospitalization)
  Sender: FDA-Public Use
  Company Number: 2012SP024119

PATIENT
  Age: 61 Year
  Sex: Female

DRUGS (3)
  1. LEVOTHYROXINE SODIUM [Concomitant]
  2. PEG-INTRON [Suspect]
     Indication: PRODUCT USED FOR UNKNOWN INDICATION
     Dosage: 150 MCG;QW;SC
     Route: 058
  3. BOCEPREVIR (SCH-503034) (800 MG) [Suspect]
     Indication: PRODUCT USED FOR UNKNOWN INDICATION
     Dosage: 800 MG;TID

REACTIONS (1)
  - VIITH NERVE PARALYSIS [None]
